FAERS Safety Report 15886742 (Version 1)
Quarter: 2019Q1

REPORT INFORMATION
  Report Type: Spontaneous
  Country: JP (occurrence: JP)
  Receive Date: 20190129
  Receipt Date: 20190129
  Transmission Date: 20190417
  Serious: Yes (Hospitalization)
  Sender: FDA-Public Use
  Company Number: JP-ELI_LILLY_AND_COMPANY-JP201901012216

PATIENT
  Age: 64 Year
  Sex: Male

DRUGS (3)
  1. DULOXETINE HYDROCHLORIDE. [Suspect]
     Active Substance: DULOXETINE HYDROCHLORIDE
     Dosage: 40 MG, DAILY
     Route: 048
     Dates: start: 20180921
  2. DULOXETINE HYDROCHLORIDE. [Suspect]
     Active Substance: DULOXETINE HYDROCHLORIDE
     Dosage: 20 MG, EACH MORNING
     Route: 048
     Dates: start: 20180910, end: 20180920
  3. DULOXETINE HYDROCHLORIDE. [Suspect]
     Active Substance: DULOXETINE HYDROCHLORIDE
     Indication: OSTEOARTHRITIS
     Dosage: 20 MG, EACH MORNING
     Route: 048
     Dates: start: 20180904, end: 201809

REACTIONS (2)
  - Hyperhidrosis [Unknown]
  - Prostatitis [Unknown]

NARRATIVE: CASE EVENT DATE: 201809
